FAERS Safety Report 4678268-6 (Version None)
Quarter: 2005Q2

REPORT INFORMATION
  Report Type: 
  Country: None (occurrence: None)
  Receive Date: 20050601
  Receipt Date: 20050524
  Transmission Date: 20051028
  Serious: Yes (Other)
  Sender: FDA-Public Use
  Company Number: 200514526US

PATIENT
  Sex: 0

DRUGS (2)
  1. ARAVA [Suspect]
     Dosage: DOSE: UNK
  2. REMICADE [Concomitant]
     Dosage: DOSE: NOT PROVIDED

REACTIONS (1)
  - CARDIAC ARREST [None]
